FAERS Safety Report 8413242-5 (Version None)
Quarter: 2012Q2

REPORT INFORMATION
  Report Type: 
  Country: None (occurrence: None)
  Receive Date: 20120605
  Receipt Date: 20120601
  Transmission Date: 20120825
  Serious: Yes (Hospitalization, Other)
  Sender: FDA-Public Use
  Company Number: US-PFIZER INC-2012132347

PATIENT
  Sex: Male

DRUGS (2)
  1. NEURONTIN [Suspect]
     Dosage: UNK
  2. XANAX [Suspect]
     Dosage: QTY OF 90

REACTIONS (4)
  - CHEMICAL INJURY [None]
  - OVERDOSE [None]
  - SUICIDE ATTEMPT [None]
  - URINARY INCONTINENCE [None]
